FAERS Safety Report 9030295 (Version 1)
Quarter: 2013Q1

REPORT INFORMATION
  Report Type: Spontaneous
  Country: US (occurrence: US)
  Receive Date: 20130122
  Receipt Date: 20130122
  Transmission Date: 20140127
  Serious: Yes (Other)
  Sender: FDA-Public Use
  Company Number: US-BRISTOL-MYERS SQUIBB COMPANY-17281502

PATIENT
  Age: 73 Year
  Sex: Female
  Weight: 76.19 kg

DRUGS (1)
  1. ORENCIA [Suspect]
     Indication: RHEUMATOID ARTHRITIS
     Dosage: STRENGTH: 125MG
     Route: 058
     Dates: start: 2012

REACTIONS (3)
  - Surgery [Unknown]
  - Fall [Unknown]
  - Drug ineffective [Unknown]
